FAERS Safety Report 20922223 (Version 1)
Quarter: 2022Q2

REPORT INFORMATION
  Report Type: Spontaneous
  Country: US (occurrence: US)
  Receive Date: 20220607
  Receipt Date: 20220607
  Transmission Date: 20220721
  Serious: Yes (Other)
  Sender: FDA-Public Use
  Company Number: US-STRIDES ARCOLAB LIMITED-2022SP006110

PATIENT
  Age: 75 Year
  Sex: Male

DRUGS (8)
  1. PREDNISOLONE [Suspect]
     Active Substance: PREDNISOLONE
     Indication: Pityriasis rubra pilaris
     Dosage: UNK
     Route: 065
  2. PREDNISOLONE [Suspect]
     Active Substance: PREDNISOLONE
     Dosage: UNK, TAPPER
     Route: 065
  3. TRIAMCINOLONE ACETONIDE [Suspect]
     Active Substance: TRIAMCINOLONE ACETONIDE
     Indication: Pityriasis rubra pilaris
     Dosage: UNK, OINTMENT
     Route: 065
  4. ACITRETIN [Suspect]
     Active Substance: ACITRETIN
     Indication: Pityriasis rubra pilaris
     Dosage: 25 MILLIGRAM, BID
     Route: 065
  5. ACITRETIN [Suspect]
     Active Substance: ACITRETIN
     Dosage: 25 MILLIGRAM, QD
     Route: 065
  6. ACITRETIN [Suspect]
     Active Substance: ACITRETIN
     Dosage: 25 MILLIGRAM, BID (INCREASING ACITRETIN BACK)
     Route: 065
  7. APREMILAST [Suspect]
     Active Substance: APREMILAST
     Indication: Pityriasis rubra pilaris
     Dosage: UNK
     Route: 065
  8. APREMILAST [Suspect]
     Active Substance: APREMILAST
     Dosage: 30 MILLIGRAM, BID (SLOWLY TITRATED)
     Route: 065

REACTIONS (2)
  - Drug ineffective [Unknown]
  - Therapy partial responder [Unknown]
